FAERS Safety Report 7057843-8 (Version None)
Quarter: 2010Q4

REPORT INFORMATION
  Report Type: 
  Country: None (occurrence: None)
  Receive Date: 20101021
  Receipt Date: 20101021
  Transmission Date: 20110411
  Serious: Yes (Life-Threatening)
  Sender: FDA-Public Use
  Company Number: None

PATIENT
  Age: 15 Year
  Sex: Male
  Weight: 43.6 kg

DRUGS (2)
  1. INFLIXIMAB 100MG CENTOCOR [Suspect]
     Indication: CROHN'S DISEASE
     Dosage: 450MG MONTHLY IV
     Route: 042
     Dates: start: 20051103, end: 20090429
  2. ADALIMUMAB 20MG ABBOTT LAB [Suspect]
     Indication: CROHN'S DISEASE
     Dosage: 40MG EVERY 2 WEEKS SQ
     Route: 058
     Dates: start: 20090512, end: 20091116

REACTIONS (1)
  - ACUTE MYELOID LEUKAEMIA [None]
